FAERS Safety Report 17382330 (Version 1)
Quarter: 2020Q1

REPORT INFORMATION
  Report Type: Report from Study
  Country: IT (occurrence: IT)
  Receive Date: 20200206
  Receipt Date: 20200206
  Transmission Date: 20200409
  Serious: Yes (Other)
  Sender: FDA-Public Use
  Company Number: PHHY2014IT062182

PATIENT
  Age: 62 Year
  Sex: Female

DRUGS (3)
  1. VISTAGAN [Concomitant]
     Indication: GLAUCOMA
     Dosage: UNK
     Route: 065
  2. CARDIOASPIRIN [Concomitant]
     Active Substance: ASPIRIN
     Indication: PRODUCT USED FOR UNKNOWN INDICATION
     Dosage: 100 MG, UNK (FOR 23 YEARS)
     Route: 048
  3. GILENYA [Suspect]
     Active Substance: FINGOLIMOD HYDROCHLORIDE
     Indication: MULTIPLE SCLEROSIS
     Dosage: 0.5 MG, QD
     Route: 048
     Dates: start: 20131015, end: 20140715

REACTIONS (4)
  - Bursitis [Unknown]
  - Leukopenia [Recovered/Resolved]
  - Bradycardia [Recovered/Resolved]
  - Neutropenia [Recovered/Resolved]

NARRATIVE: CASE EVENT DATE: 20131015
